FAERS Safety Report 5179580-7 (Version None)
Quarter: 2006Q4

REPORT INFORMATION
  Report Type: 
  Country: None (occurrence: None)
  Receive Date: 20061211
  Receipt Date: 20061128
  Transmission Date: 20070319
  Serious: Yes (Other)
  Sender: FDA-Public Use
  Company Number: 2006147190

PATIENT
  Age: 49 Year
  Sex: Male

DRUGS (3)
  1. LYRICA [Suspect]
     Indication: PAIN
     Dosage: 450 MG (2 IN 1 D), ORAL
     Route: 048
     Dates: start: 20040101
  2. AMITRIPTYLINE HCL [Concomitant]
  3. NOVAMINSULFON ^LICHTENSTEIN^ (METAMIZOLE SODIUM) [Concomitant]

REACTIONS (2)
  - CARDIAC FAILURE [None]
  - DYSPNOEA [None]
